FAERS Safety Report 4385917-9 (Version None)
Quarter: 2004Q2

REPORT INFORMATION
  Report Type: 
  Country: None (occurrence: None)
  Receive Date: 20040622
  Receipt Date: 20040610
  Transmission Date: 20050107
  Serious: Yes (Hospitalization, Congenital Anomaly)
  Sender: FDA-Public Use
  Company Number: 2003110136

PATIENT
  Age: 1 Day
  Sex: Female
  Weight: 2.435 kg

DRUGS (3)
  1. VIRACEPT [Suspect]
     Indication: HIV TEST POSITIVE
     Dosage: 2500 MG (DAILY), ORAL
     Route: 048
     Dates: start: 20030414
  2. ZIDOVUDINE [Suspect]
     Indication: HIV TEST POSITIVE
     Dosage: 300/600 MG (BID), ORAL
     Route: 048
     Dates: start: 20030414
  3. ZIDOVUDINE [Suspect]
     Indication: HIV TEST POSITIVE
     Dosage: 1883 MG (DAILY), INTRAVNEOUS
     Route: 042
     Dates: start: 20030829, end: 20030830

REACTIONS (8)
  - COMPLICATIONS OF MATERNAL EXPOSURE TO THERAPEUTIC DRUGS [None]
  - CONDYLOMA ACUMINATUM [None]
  - CONGENITAL VENTRICULAR SEPTAL DEFECT [None]
  - GROWTH RETARDATION [None]
  - HEAD DEFORMITY [None]
  - MATERNAL DRUGS AFFECTING FOETUS [None]
  - PATENT DUCTUS ARTERIOSUS [None]
  - VULVOVAGINITIS [None]
